FAERS Safety Report 8542830-0 (Version None)
Quarter: 2012Q3

REPORT INFORMATION
  Report Type: 
  Country: None (occurrence: None)
  Receive Date: 20120727
  Receipt Date: 20120718
  Transmission Date: 20120928
  Serious: No
  Sender: FDA-Public Use
  Company Number: US-BIOGENIDEC-2012BI026224

PATIENT
  Sex: Male

DRUGS (3)
  1. WARFARIN SODIUM [Concomitant]
  2. AVONEX [Suspect]
     Route: 030
     Dates: start: 20100115
  3. AVONEX [Suspect]
     Indication: MULTIPLE SCLEROSIS
     Route: 030
     Dates: start: 20090309, end: 20090930

REACTIONS (3)
  - SWELLING [None]
  - PAIN [None]
  - INJURY ASSOCIATED WITH DEVICE [None]
